FAERS Safety Report 9571323 (Version 1)
Quarter: 2013Q3

REPORT INFORMATION
  Report Type: Spontaneous
  Country: US (occurrence: None)
  Receive Date: 20130927
  Receipt Date: 20130927
  Transmission Date: 20140515
  Serious: Yes (Life-Threatening)
  Sender: FDA-Public Use
  Company Number: None

PATIENT
  Age: 42 Year
  Sex: Female
  Weight: 74.84 kg

DRUGS (1)
  1. VENLAFAXINE ER [Suspect]
     Indication: DEPRESSION
     Dosage: 2 CAPSULES IN THE MORNING, ONCE DAILY, TAKEN BY MOUTH

REACTIONS (8)
  - Product substitution issue [None]
  - Drug withdrawal syndrome [None]
  - Headache [None]
  - Gastric disorder [None]
  - Diarrhoea [None]
  - Anxiety [None]
  - Insomnia [None]
  - Depression suicidal [None]
